FAERS Safety Report 21776732 (Version 2)
Quarter: 2022Q4

REPORT INFORMATION
  Report Type: Spontaneous
  Country: US (occurrence: US)
  Receive Date: 20221226
  Receipt Date: 20221226
  Transmission Date: 20230113
  Serious: No
  Sender: FDA-Public Use
  Company Number: US-COLLEGIUM PHARMACEUTICAL, INC.-2022CGM00142

PATIENT
  Sex: Female
  Weight: 61.224 kg

DRUGS (17)
  1. NUCYNTA [Suspect]
     Active Substance: TAPENTADOL HYDROCHLORIDE
     Dosage: 75 MG, 4X/DAY (EVERY 4-6 HOURS)
     Route: 048
     Dates: start: 20220215
  2. NUCYNTA [Suspect]
     Active Substance: TAPENTADOL HYDROCHLORIDE
     Dosage: 75 MG, 6X/DAY (EVERY 4-6 HOURS)
     Route: 048
     Dates: start: 20220215
  3. OXYCODONE [Suspect]
     Active Substance: OXYCODONE
  4. GABAPENTIN [Concomitant]
     Active Substance: GABAPENTIN
     Dosage: 300 MG, 4X/DAY
  5. PAXIL [Concomitant]
     Active Substance: PAROXETINE HYDROCHLORIDE
     Dosage: 30 MG, 1X/DAY
  6. OMEPRAZOLE [Concomitant]
     Active Substance: OMEPRAZOLE
  7. HYDROCHLOROTHIAZIDE [Concomitant]
     Active Substance: HYDROCHLOROTHIAZIDE
  8. ADDERALL [Concomitant]
     Active Substance: AMPHETAMINE ASPARTATE\AMPHETAMINE SULFATE\DEXTROAMPHETAMINE SACCHARATE\DEXTROAMPHETAMINE SULFATE
  9. METOPROLOL [Concomitant]
     Active Substance: METOPROLOL
  10. ZOFRAN [Concomitant]
     Active Substance: ONDANSETRON HYDROCHLORIDE
  11. OZEMPIC [Concomitant]
     Active Substance: SEMAGLUTIDE
  12. VITAMIN B COMPLEX [Concomitant]
     Active Substance: CYANOCOBALAMIN\DEXPANTHENOL\NIACINAMIDE\PYRIDOXINE HYDROCHLORIDE\RIBOFLAVIN 5^-PHOSPHATE SODIUM\THIA
  13. VITAMIN B12 [Concomitant]
     Active Substance: CYANOCOBALAMIN
  14. FOLIC ACID [Concomitant]
     Active Substance: FOLIC ACID
  15. METHOTREXATE [Concomitant]
     Active Substance: METHOTREXATE
  16. VITAMIN D3 [Concomitant]
     Active Substance: CHOLECALCIFEROL
  17. CALCIUM [Concomitant]
     Active Substance: CALCIUM

REACTIONS (3)
  - Illness [Not Recovered/Not Resolved]
  - Drug tolerance [Unknown]
  - Drug effect less than expected [Not Recovered/Not Resolved]

NARRATIVE: CASE EVENT DATE: 20220101
